FAERS Safety Report 14870380 (Version 2)
Quarter: 2018Q2

REPORT INFORMATION
  Report Type: Spontaneous
  Country: ES (occurrence: ES)
  Receive Date: 20180509
  Receipt Date: 20180529
  Transmission Date: 20180711
  Serious: Yes (Hospitalization)
  Sender: FDA-Public Use
  Company Number: ES-MYLANLABS-2018M1030081

PATIENT
  Age: 81 Year
  Sex: Male

DRUGS (7)
  1. OMEPRAZOLE. [Concomitant]
     Active Substance: OMEPRAZOLE
     Indication: PRODUCT USED FOR UNKNOWN INDICATION
     Dosage: UNK, AM
  2. COROPRES 25 MG COMPRIMIDOS (CARVEDILOL) [Concomitant]
     Indication: PRODUCT USED FOR UNKNOWN INDICATION
     Dosage: UNK, AM
  3. DUODART 0.5/0,4 MG CAPSULAS DURAS ,DUTASTERIDE TAMSULOSIN HYDROCHLORID [Concomitant]
     Indication: PRODUCT USED FOR UNKNOWN INDICATION
     Dosage: UNK UNK, PM
  4. BETMIGA 50MG COMPRIMIDOS DE LIBERACI?N PROLONGADA (MIRABEGRON) [Concomitant]
     Indication: PRODUCT USED FOR UNKNOWN INDICATION
     Dosage: UNK, PM
  5. DILUTOL 5 MG COMPRIMIDOS [Suspect]
     Active Substance: TORSEMIDE
     Indication: URINARY RETENTION
     Dosage: 1 DF, AT LUNCH
     Route: 048
  6. CARNICOR 100 MG/ML SOLUCION ORAL (LCARNITIN) [Concomitant]
     Indication: PRODUCT USED FOR UNKNOWN INDICATION
     Dosage: UNK, AM
     Route: 048
  7. KARVEZIDE 300 MG/25 MG COMPRIMIDOS RECUBIERTOS CON PEL?CULA [Suspect]
     Active Substance: HYDROCHLOROTHIAZIDE\IRBESARTAN
     Indication: PRODUCT USED FOR UNKNOWN INDICATION
     Dosage: UNK, AM
     Route: 048

REACTIONS (3)
  - Blood potassium decreased [Recovered/Resolved]
  - Blood sodium decreased [Recovered/Resolved]
  - Urinary tract infection [Recovered/Resolved]
